FAERS Safety Report 4712649-7 (Version None)
Quarter: 2005Q3

REPORT INFORMATION
  Report Type: 
  Country: None (occurrence: None)
  Receive Date: 20050706
  Receipt Date: 20041004
  Transmission Date: 20060218
  Serious: Yes (Hospitalization, Other)
  Sender: FDA-Public Use
  Company Number: US-2004-030933

PATIENT
  Age: 56 Year
  Sex: Male

DRUGS (9)
  1. CAMPATH [Suspect]
     Indication: B-CELL LYMPHOMA
     Dosage: 3/10/30 MG, SUBCUTANEOUS
     Route: 058
     Dates: start: 20040719, end: 20040820
  2. CAMPATH [Suspect]
     Indication: CHRONIC LYMPHOCYTIC LEUKAEMIA
     Dosage: 3/10/30 MG, SUBCUTANEOUS
     Route: 058
     Dates: start: 20040719, end: 20040820
  3. TYLENOL [Concomitant]
  4. BENADRYL ^ACHE^ (DIPHENHYDRAMINE HYDROCHLORIDE, AMMONIUM CHLORIDE, MEN [Concomitant]
  5. BACTRIM [Concomitant]
  6. FAMVIR [Concomitant]
  7. SYNTHROID [Concomitant]
  8. MULTIPLE VITAMINS (RETINOL) [Concomitant]
  9. FLONASE [Concomitant]

REACTIONS (5)
  - CYTOMEGALOVIRUS INFECTION [None]
  - HYPOAESTHESIA [None]
  - LOBAR PNEUMONIA [None]
  - PARAESTHESIA [None]
  - RASH MACULO-PAPULAR [None]
